FAERS Safety Report 7534193-4 (Version None)
Quarter: 2011Q2

REPORT INFORMATION
  Report Type: 
  Country: None (occurrence: None)
  Receive Date: 20110608
  Receipt Date: 20061109
  Transmission Date: 20111010
  Serious: Yes (Hospitalization, Other)
  Sender: FDA-Public Use
  Company Number: PHMT2006CA02115

PATIENT
  Sex: Female

DRUGS (4)
  1. ASPIRIN [Concomitant]
     Dosage: UNK
  2. DIOVAN HCT [Suspect]
     Dosage: 160MG/25MG
     Route: 048
     Dates: start: 20050101
  3. NORVASC [Concomitant]
     Dosage: UNK
  4. DIOVAN HCT [Suspect]
     Dosage: 160MG/12.5MG
     Route: 048
     Dates: start: 20020101, end: 20050101

REACTIONS (1)
  - ARTERIAL THROMBOSIS [None]
